FAERS Safety Report 7744182-2 (Version None)
Quarter: 2011Q3

REPORT INFORMATION
  Report Type: 
  Country: None (occurrence: None)
  Receive Date: 20110912
  Receipt Date: 20110905
  Transmission Date: 20111222
  Serious: Yes (Hospitalization, Other)
  Sender: FDA-Public Use
  Company Number: US-SANOFI-AVENTIS-2011SA057796

PATIENT
  Sex: Female

DRUGS (6)
  1. SOLOSTAR [Suspect]
     Dates: start: 20110101
  2. METOPROLOL SUCCINATE [Concomitant]
  3. HUMALOG [Concomitant]
  4. LANTUS [Suspect]
     Route: 058
  5. ALL OTHER THERAPEUTIC PRODUCTS [Concomitant]
  6. BUMEX [Concomitant]

REACTIONS (8)
  - ELECTROLYTE IMBALANCE [None]
  - INJECTION SITE HAEMATOMA [None]
  - CARDIAC FAILURE CONGESTIVE [None]
  - RENAL FAILURE [None]
  - HEPATIC FAILURE [None]
  - INJECTION SITE HAEMORRHAGE [None]
  - HYPOKALAEMIA [None]
  - WEIGHT DECREASED [None]
